FAERS Safety Report 4823711-2 (Version None)
Quarter: 2005Q4

REPORT INFORMATION
  Report Type: 
  Country: None (occurrence: None)
  Receive Date: 20051109
  Receipt Date: 20050118
  Transmission Date: 20060501
  Serious: Yes (Hospitalization)
  Sender: FDA-Public Use
  Company Number: US-ROCHE-392954

PATIENT
  Age: 50 Year
  Sex: Male
  Weight: 129.7 kg

DRUGS (11)
  1. PEGASYS [Suspect]
     Route: 050
     Dates: start: 20041207, end: 20050331
  2. PEGASYS [Suspect]
     Route: 050
  3. PEGASYS [Suspect]
     Route: 050
     Dates: end: 20050504
  4. COPEGUS [Suspect]
     Route: 048
     Dates: start: 20041207, end: 20050504
  5. ASPIRIN [Concomitant]
  6. NORVASC [Concomitant]
  7. LANTUS [Concomitant]
  8. GLYBURIDE [Concomitant]
  9. APO-METOPROLOL [Concomitant]
  10. M.V.I. [Concomitant]
  11. FOLIC ACID [Concomitant]

REACTIONS (23)
  - ABDOMINAL PAIN UPPER [None]
  - ALPHA 1 FOETOPROTEIN INCREASED [None]
  - ANAEMIA [None]
  - CHILLS [None]
  - DEPRESSION [None]
  - DIARRHOEA [None]
  - DISTURBANCE IN ATTENTION [None]
  - DIVERTICULUM INTESTINAL [None]
  - FATIGUE [None]
  - FLIGHT OF IDEAS [None]
  - FRUSTRATION [None]
  - INTERNATIONAL NORMALISED RATIO DECREASED [None]
  - MALAISE [None]
  - NAUSEA [None]
  - NEUTROPHIL COUNT DECREASED [None]
  - PYREXIA [None]
  - SOCIAL PROBLEM [None]
  - SUICIDAL IDEATION [None]
  - THERAPY NON-RESPONDER [None]
  - THROMBOCYTOPENIA [None]
  - URINARY TRACT INFECTION [None]
  - VOMITING [None]
  - WHITE BLOOD CELL COUNT DECREASED [None]
